FAERS Safety Report 24892534 (Version 4)
Quarter: 2025Q2

REPORT INFORMATION
  Report Type: Spontaneous
  Country: US (occurrence: US)
  Receive Date: 20250128
  Receipt Date: 20250530
  Transmission Date: 20250716
  Serious: No
  Sender: SANOFI AVENTIS
  Company Number: US-SANOFI-02386627

PATIENT
  Age: 67 Year
  Sex: Female

DRUGS (2)
  1. TOUJEO [Suspect]
     Active Substance: INSULIN GLARGINE
     Indication: Type 2 diabetes mellitus
     Dosage: 45 IU, QD
     Route: 065
     Dates: start: 2016, end: 20250422
  2. TOUJEO [Suspect]
     Active Substance: INSULIN GLARGINE
     Dosage: 47 IU, QD
     Route: 065
     Dates: start: 20250422

REACTIONS (4)
  - Injection site pain [Unknown]
  - Blood glucose increased [Unknown]
  - Visual impairment [Unknown]
  - Device mechanical issue [Unknown]

NARRATIVE: CASE EVENT DATE: 20240501
